FAERS Safety Report 17347481 (Version 6)
Quarter: 2022Q1

REPORT INFORMATION
  Report Type: Spontaneous
  Country: JP (occurrence: JP)
  Receive Date: 20200130
  Receipt Date: 20220119
  Transmission Date: 20220423
  Serious: Yes (Death, Life-Threatening, Hospitalization, Other)
  Sender: FDA-Public Use
  Company Number: JP-BRISTOL-MYERS SQUIBB COMPANY-BMS-2020-006919

PATIENT
  Age: 59 Year
  Sex: Male

DRUGS (1)
  1. OPDIVO [Suspect]
     Active Substance: NIVOLUMAB
     Indication: Non-small cell lung cancer recurrent
     Dosage: 3 MILLIGRAM/KILOGRAM, Q2WK
     Route: 041

REACTIONS (7)
  - Multiple organ dysfunction syndrome [Fatal]
  - Immune-mediated lung disease [Fatal]
  - Shock symptom [Unknown]
  - Sepsis [Unknown]
  - Acute kidney injury [Unknown]
  - Immune-mediated enterocolitis [Recovering/Resolving]
  - Endocarditis [Unknown]
